FAERS Safety Report 18728242 (Version 1)
Quarter: 2021Q1

REPORT INFORMATION
  Report Type: Spontaneous
  Country: US (occurrence: US)
  Receive Date: 20210112
  Receipt Date: 20210112
  Transmission Date: 20210419
  Serious: No
  Sender: FDA-Public Use
  Company Number: US-STRIDES ARCOLAB LIMITED-2020SP015672

PATIENT
  Age: 55 Year

DRUGS (5)
  1. GABAPENTIN. [Suspect]
     Active Substance: GABAPENTIN
     Indication: DERMATITIS ATOPIC
     Dosage: UNK
     Route: 065
  2. APREPITANT. [Suspect]
     Active Substance: APREPITANT
     Indication: DERMATITIS ATOPIC
     Dosage: UNK
     Route: 065
  3. TRIAMCINOLONE ACETONIDE. [Suspect]
     Active Substance: TRIAMCINOLONE ACETONIDE
     Indication: DERMATITIS ATOPIC
     Dosage: UNK
     Route: 065
  4. DUPILUMAB [Suspect]
     Active Substance: DUPILUMAB
     Indication: DERMATITIS ATOPIC
     Dosage: UNK
     Route: 065
  5. NALOXONE [Suspect]
     Active Substance: NALOXONE
     Indication: DERMATITIS ATOPIC
     Dosage: UNK
     Route: 065

REACTIONS (2)
  - Off label use [Unknown]
  - Treatment failure [Unknown]
